FAERS Safety Report 10046730 (Version 1)
Quarter: 2014Q1

REPORT INFORMATION
  Report Type: Spontaneous
  Country: US (occurrence: None)
  Receive Date: 20140328
  Receipt Date: 20140328
  Transmission Date: 20141002
  Serious: Yes (Disabling)
  Sender: FDA-Public Use
  Company Number: None

PATIENT
  Age: 63 Year
  Sex: Male
  Weight: 108.86 kg

DRUGS (1)
  1. METRONIDAZOLE [Suspect]
     Indication: ROSACEA
     Dosage: SMALL AMOUNT ONCE DAILY APPLIED TO A SURFACE, USUALLY THE SKIN
     Dates: start: 20130701, end: 20140105

REACTIONS (11)
  - Ear pain [None]
  - Foreign body [None]
  - Tinnitus [None]
  - Oropharyngeal pain [None]
  - Dizziness [None]
  - Gait disturbance [None]
  - Cough [None]
  - Rhinorrhoea [None]
  - Sinus headache [None]
  - Hypoacusis [None]
  - Impaired driving ability [None]
